FAERS Safety Report 7728993-5 (Version None)
Quarter: 2011Q3

REPORT INFORMATION
  Report Type: 
  Country: None (occurrence: None)
  Receive Date: 20110906
  Receipt Date: 20110822
  Transmission Date: 20111222
  Serious: Yes (Hospitalization)
  Sender: FDA-Public Use
  Company Number: GB-MYLANLABS-2011S1017458

PATIENT
  Age: 1 Year
  Sex: Male
  Weight: 6.5 kg

DRUGS (1)
  1. TACROLIMUS [Suspect]
     Indication: PROPHYLAXIS AGAINST TRANSPLANT REJECTION

REACTIONS (7)
  - CARDIAC FAILURE [None]
  - DRUG LEVEL INCREASED [None]
  - ELECTROENCEPHALOGRAM ABNORMAL [None]
  - BRAIN OEDEMA [None]
  - PUPIL FIXED [None]
  - RENAL FAILURE [None]
  - RESPIRATORY FAILURE [None]
